FAERS Safety Report 7497659-1 (Version None)
Quarter: 2011Q2

REPORT INFORMATION
  Report Type: 
  Country: None (occurrence: None)
  Receive Date: 20110523
  Receipt Date: 20110512
  Transmission Date: 20111010
  Serious: Yes (Hospitalization)
  Sender: FDA-Public Use
  Company Number: PHHY2011CN41193

PATIENT
  Age: 27 Year
  Sex: Male

DRUGS (3)
  1. CEFTRIAXONE [Concomitant]
  2. VANCOMYCIN [Suspect]
     Indication: WOUND INFECTION
  3. MINOCYCLINE HCL [Concomitant]

REACTIONS (4)
  - WHITE BLOOD CELL COUNT DECREASED [None]
  - PYREXIA [None]
  - NEUTROPHIL COUNT DECREASED [None]
  - LEUKOPENIA [None]
